FAERS Safety Report 7367444-X (Version None)
Quarter: 2011Q1

REPORT INFORMATION
  Report Type: 
  Country: None (occurrence: None)
  Receive Date: 20110322
  Receipt Date: 20110318
  Transmission Date: 20110831
  Serious: Yes (Other)
  Sender: FDA-Public Use
  Company Number: US-PFIZER INC-2008051129

PATIENT
  Sex: Female
  Weight: 72.562 kg

DRUGS (8)
  1. LORAZEPAM [Concomitant]
     Indication: ANXIETY
  2. CHANTIX [Suspect]
     Dosage: 0.5 MG, 1X/DAY
     Dates: start: 20090909
  3. CHANTIX [Suspect]
     Indication: SMOKING CESSATION THERAPY
     Dosage: 0.5 MG, 1X/DAY
     Dates: start: 20080601
  4. CHANTIX [Suspect]
     Dosage: 1 MG, 2X/DAY
     Dates: start: 20080101
  5. ZOLPIDEM TARTRATE [Concomitant]
     Indication: INSOMNIA
  6. VERAPAMIL HYDROCHLORIDE [Concomitant]
  7. OXCARBAZEPINE [Concomitant]
     Indication: MOOD SWINGS
  8. AMBIEN [Concomitant]
     Indication: SLEEP DISORDER

REACTIONS (1)
  - DEPRESSION [None]
